FAERS Safety Report 15317182 (Version 1)
Quarter: 2018Q3

REPORT INFORMATION
  Report Type: Spontaneous
  Country: FR (occurrence: FR)
  Receive Date: 20180824
  Receipt Date: 20180824
  Transmission Date: 20181010
  Serious: Yes (Death, Hospitalization, Other)
  Sender: FDA-Public Use
  Company Number: PHHY2018FR081095

PATIENT
  Age: 90 Year
  Sex: Female

DRUGS (7)
  1. TILDIEM [Concomitant]
     Active Substance: DILTIAZEM HYDROCHLORIDE
     Indication: ARRHYTHMIA
     Route: 065
  2. HEMIGOXINE [Concomitant]
     Active Substance: DIGOXIN
     Indication: ARRHYTHMIA
     Route: 065
  3. KERLONE [Concomitant]
     Active Substance: BETAXOLOL HYDROCHLORIDE
     Indication: TACHYCARDIA
  4. ACLASTA [Suspect]
     Active Substance: ZOLEDRONIC ACID
     Indication: RIB FRACTURE
     Dosage: UNK
     Route: 042
     Dates: start: 20180317
  5. KERLONE [Concomitant]
     Active Substance: BETAXOLOL HYDROCHLORIDE
     Indication: ARRHYTHMIA
     Route: 065
  6. TILDIEM [Concomitant]
     Active Substance: DILTIAZEM HYDROCHLORIDE
     Indication: TACHYCARDIA
  7. HEMIGOXINE [Concomitant]
     Active Substance: DIGOXIN
     Indication: TACHYCARDIA

REACTIONS (8)
  - Facial paralysis [Unknown]
  - Dehydration [Unknown]
  - Death [Fatal]
  - Asthenia [Unknown]
  - Blood creatinine increased [Not Recovered/Not Resolved]
  - Product use in unapproved indication [Unknown]
  - Acne [Unknown]
  - Decreased appetite [Unknown]

NARRATIVE: CASE EVENT DATE: 201803
